FAERS Safety Report 15815321 (Version 2)
Quarter: 2019Q1

REPORT INFORMATION
  Report Type: Spontaneous
  Country: GB (occurrence: GB)
  Receive Date: 20190112
  Receipt Date: 20190126
  Transmission Date: 20190417
  Serious: Yes (Hospitalization, Other)
  Sender: FDA-Public Use
  Company Number: GB-MACLEODS PHARMACEUTICALS US LTD-MAC2019019490

PATIENT

DRUGS (4)
  1. DOLUTEGRAVIR [Concomitant]
     Active Substance: DOLUTEGRAVIR
     Indication: HIV INFECTION
     Dosage: UNK
     Route: 065
  2. DARUNAVIR/COBICISTAT [Interacting]
     Active Substance: COBICISTAT\DARUNAVIR ETHANOLATE
     Indication: HIV INFECTION
     Dosage: UNK, DRV/C
     Route: 065
  3. BUPIVACAINE. [Concomitant]
     Active Substance: BUPIVACAINE
     Indication: BURSITIS
     Dosage: 40 MG OF TRIAMCINOLONE AND 0.5% BUPIVACAINE WAS INJECTED LEFT GREATER TROCHANTERIC BURSA, INJECTION
     Route: 065
  4. TRIAMCINOLONE [Suspect]
     Active Substance: TRIAMCINOLONE
     Indication: BURSITIS
     Dosage: 40 MG OF TRIAMCINOLONE AND 0.5% BUPIVACAINE WAS INJECTED LEFT GREATER TROCHANTERIC BURSA, INJECTION
     Route: 042

REACTIONS (7)
  - Cushing^s syndrome [Recovered/Resolved]
  - Urine output decreased [Recovered/Resolved]
  - Hypovolaemia [Recovered/Resolved]
  - Adrenal insufficiency [Recovered/Resolved]
  - Drug interaction [Recovered/Resolved]
  - Adrenal suppression [Unknown]
  - Drug clearance decreased [Recovered/Resolved]
